FAERS Safety Report 14499643 (Version 1)
Quarter: 2018Q1

REPORT INFORMATION
  Report Type: Spontaneous
  Country: US (occurrence: US)
  Receive Date: 20180207
  Receipt Date: 20180207
  Transmission Date: 20180509
  Serious: No
  Sender: FDA-Public Use
  Company Number: US-PERRIGO-17US027792

PATIENT
  Age: 21 Year
  Sex: Female
  Weight: 56.69 kg

DRUGS (2)
  1. CETIRIZINE HYDROCHLORIDE. [Suspect]
     Active Substance: CETIRIZINE HYDROCHLORIDE
     Indication: SEASONAL ALLERGY
     Dosage: 10 MG, QD
     Route: 048
  2. CETIRIZINE HYDROCHLORIDE. [Suspect]
     Active Substance: CETIRIZINE HYDROCHLORIDE
     Dosage: 10 MG, TWICE IN A FEW HOURS
     Route: 048
     Dates: start: 20171025, end: 20171025

REACTIONS (1)
  - Wrong drug administered [Recovered/Resolved]

NARRATIVE: CASE EVENT DATE: 20171025
